FAERS Safety Report 20832029 (Version 1)
Quarter: 2022Q2

REPORT INFORMATION
  Report Type: Spontaneous
  Country: US (occurrence: US)
  Receive Date: 20220516
  Receipt Date: 20220516
  Transmission Date: 20220721
  Serious: Yes (Other)
  Sender: FDA-Public Use
  Company Number: US-GLENMARK PHARMACEUTICALS-2022GMK072207

PATIENT

DRUGS (1)
  1. HAILEY 1.5/30 [Suspect]
     Active Substance: ETHINYL ESTRADIOL\NORETHINDRONE ACETATE
     Indication: Product used for unknown indication
     Dosage: 1 DOSAGE FORM, QD (1 TABLET PER DAY FOR 21 DAYS WITH 7 DAYS OFF)
     Route: 048

REACTIONS (1)
  - Bipolar disorder [Unknown]
